FAERS Safety Report 5702733-3 (Version None)
Quarter: 2008Q2

REPORT INFORMATION
  Report Type: 
  Country: None (occurrence: None)
  Receive Date: 20080411
  Receipt Date: 20080407
  Transmission Date: 20081010
  Serious: Yes (Hospitalization)
  Sender: FDA-Public Use
  Company Number: B0501807A

PATIENT
  Age: 86 Year
  Sex: Male
  Weight: 71.5 kg

DRUGS (12)
  1. ARIXTRA [Suspect]
     Indication: DRUG USE FOR UNKNOWN INDICATION
     Dosage: 7.5MG PER DAY
     Route: 058
     Dates: start: 20071102, end: 20071122
  2. PREVISCAN [Suspect]
     Indication: ATRIAL FIBRILLATION
     Dosage: .75UNIT PER DAY
     Route: 048
     Dates: start: 20071116, end: 20071122
  3. CALCIPARINE [Concomitant]
     Dosage: 15000IU PER DAY
     Route: 058
     Dates: start: 20071001, end: 20071102
  4. ALTIZIDE + SPIRONOLACTONE [Concomitant]
  5. AMLODIPINE BESYLATE [Concomitant]
  6. PRAVASTATIN [Concomitant]
  7. INIPOMP [Concomitant]
  8. DURAGESIC-100 [Concomitant]
  9. LACTULOSE [Concomitant]
  10. DAFALGAN [Concomitant]
  11. PERMIXON [Concomitant]
  12. SOTALOL HCL [Concomitant]

REACTIONS (7)
  - ANAEMIA [None]
  - CONJUNCTIVAL DISCOLOURATION [None]
  - DRUG INTERACTION [None]
  - FALL [None]
  - HAEMATOMA [None]
  - OEDEMA PERIPHERAL [None]
  - OVERDOSE [None]
